FAERS Safety Report 9885988 (Version 1)
Quarter: 2014Q1

REPORT INFORMATION
  Report Type: Spontaneous
  Country: GB (occurrence: GB)
  Receive Date: 20140210
  Receipt Date: 20140210
  Transmission Date: 20141002
  Serious: Yes (Disabling)
  Sender: FDA-Public Use
  Company Number: GB-GLAXOSMITHKLINE-B0966422A

PATIENT
  Age: 79 Year
  Sex: Female

DRUGS (4)
  1. REVOLADE [Suspect]
     Indication: THROMBOCYTOPENIC PURPURA
     Dosage: 50MG PER DAY
     Route: 048
     Dates: start: 20140106
  2. DIGOXIN [Concomitant]
     Dosage: 125MCG PER DAY
     Route: 048
  3. BISOPROLOL [Concomitant]
     Dosage: 2.5MG PER DAY
     Route: 048
  4. LANSOPRAZOLE [Concomitant]
     Dosage: 15MG PER DAY
     Route: 048

REACTIONS (1)
  - Visual impairment [Recovered/Resolved]
